FAERS Safety Report 13151807 (Version 2)
Quarter: 2018Q2

REPORT INFORMATION
  Report Type: Report from Study
  Country: CA (occurrence: CA)
  Receive Date: 20170125
  Receipt Date: 20180613
  Transmission Date: 20180711
  Serious: Yes (Hospitalization)
  Sender: FDA-Public Use
  Company Number: CA-ACTELION-A-US2017-148919

PATIENT
  Age: 32 Year
  Sex: Female

DRUGS (7)
  1. REACTINE [Concomitant]
  2. ADCIRCA [Concomitant]
     Active Substance: TADALAFIL
  3. UPTRAVI [Suspect]
     Active Substance: SELEXIPAG
     Dosage: UNK
     Route: 048
     Dates: start: 20161010
  4. LASIX [Concomitant]
     Active Substance: FUROSEMIDE
  5. TRACLEER [Suspect]
     Active Substance: BOSENTAN
     Indication: PULMONARY ARTERIAL HYPERTENSION
     Route: 048
  6. DESOGESTREL + ETINILESTRADIOL [Concomitant]
     Active Substance: DESOGESTREL\ETHINYL ESTRADIOL
  7. UPTRAVI [Suspect]
     Active Substance: SELEXIPAG
     Indication: PULMONARY ARTERIAL HYPERTENSION
     Dosage: 400 MCG, BID
     Route: 048

REACTIONS (4)
  - Transplant [Unknown]
  - Balloon atrial septostomy [Recovered/Resolved]
  - Transplant evaluation [Recovered/Resolved]
  - Dyspnoea [Recovered/Resolved]
